FAERS Safety Report 4641447-8 (Version None)
Quarter: 2005Q2

REPORT INFORMATION
  Report Type: 
  Country: None (occurrence: None)
  Receive Date: 20050421
  Receipt Date: 20050418
  Transmission Date: 20051028
  Serious: Yes (Disabling)
  Sender: FDA-Public Use
  Company Number: PHBS2005YU05474

PATIENT
  Age: 22 Year
  Sex: Female
  Weight: 50 kg

DRUGS (2)
  1. LORAZEPAM [Concomitant]
  2. LEPONEX [Suspect]
     Indication: SCHIZOAFFECTIVE DISORDER
     Dosage: 25 MG/D
     Route: 048
     Dates: start: 20041101

REACTIONS (6)
  - ANXIETY [None]
  - CONFUSIONAL STATE [None]
  - HYPERTONIA [None]
  - HYPOKINESIA [None]
  - HYPOTENSION [None]
  - SALIVARY HYPERSECRETION [None]
